FAERS Safety Report 6617606-1 (Version None)
Quarter: 2010Q1

REPORT INFORMATION
  Report Type: 
  Country: None (occurrence: None)
  Receive Date: 20100302
  Receipt Date: 20100219
  Transmission Date: 20100710
  Serious: Yes (Disabling, Other)
  Sender: FDA-Public Use
  Company Number: 2010AP000336

PATIENT
  Age: 66 Year

DRUGS (4)
  1. RAMIPRIL [Suspect]
     Indication: HYPERTENSION
     Dosage: 1.25 MG;PO
     Route: 048
     Dates: start: 20091203, end: 20091211
  2. FLUTICASONE PROPIONATE [Concomitant]
  3. SALMETEROL (SALMETEROL) [Concomitant]
  4. ................ [Concomitant]

REACTIONS (2)
  - BLISTER [None]
  - OEDEMA PERIPHERAL [None]
